FAERS Safety Report 8446916-0 (Version None)
Quarter: 2012Q2

REPORT INFORMATION
  Report Type: 
  Country: None (occurrence: None)
  Receive Date: 20120613
  Receipt Date: 20120613
  Transmission Date: 20120825
  Serious: No
  Sender: FDA-Public Use
  Company Number: None

PATIENT
  Sex: Female

DRUGS (1)
  1. HUMIRA [Suspect]
     Indication: CROHN'S DISEASE
     Dosage: 40MG 90 WEEK SQ
     Route: 058
     Dates: start: 20090605

REACTIONS (2)
  - EPISTAXIS [None]
  - PALPITATIONS [None]
